FAERS Safety Report 17746071 (Version 1)
Quarter: 2020Q2

REPORT INFORMATION
  Report Type: Spontaneous
  Country: US (occurrence: US)
  Receive Date: 20200505
  Receipt Date: 20200505
  Transmission Date: 20200714
  Serious: Yes (Hospitalization)
  Sender: FDA-Public Use
  Company Number: US-GLAXOSMITHKLINE-US2020AMR075491

PATIENT
  Age: 50 Year
  Sex: Female

DRUGS (2)
  1. NUCALA [Suspect]
     Active Substance: MEPOLIZUMAB
     Dosage: 300 MG, CYC
     Route: 058
     Dates: start: 201912
  2. NUCALA [Suspect]
     Active Substance: MEPOLIZUMAB
     Indication: ASTHMA
     Dosage: 100 MG, CYC
     Route: 058
     Dates: start: 201801, end: 201807

REACTIONS (8)
  - Malaise [Unknown]
  - Pneumonitis [Unknown]
  - Ill-defined disorder [Unknown]
  - Eosinophil count increased [Unknown]
  - Drug ineffective [Unknown]
  - Bronchoscopy [Unknown]
  - Social problem [Unknown]
  - Hospitalisation [Unknown]

NARRATIVE: CASE EVENT DATE: 201907
